FAERS Safety Report 7305153-3 (Version None)
Quarter: 2011Q1

REPORT INFORMATION
  Report Type: 
  Country: None (occurrence: None)
  Receive Date: 20110222
  Receipt Date: 20110211
  Transmission Date: 20110831
  Serious: Yes (Hospitalization, Other)
  Sender: FDA-Public Use
  Company Number: CA-CELGENEUS-028-21880-11021523

PATIENT
  Sex: Female
  Weight: 56.3 kg

DRUGS (5)
  1. REVLIMID [Suspect]
     Indication: MULTIPLE MYELOMA
     Route: 048
     Dates: start: 20100622
  2. TYLENOL W/ CODEINE NO. 3 [Concomitant]
     Indication: PAIN
     Route: 048
  3. ONDANSETRON [Concomitant]
     Indication: NAUSEA
     Route: 048
  4. MAXIDEX [Concomitant]
     Dosage: 0.1%
     Dates: start: 20110107
  5. DEXAMETHASONE [Concomitant]
     Indication: MULTIPLE MYELOMA
     Route: 048
     Dates: start: 20100622

REACTIONS (6)
  - HEAD INJURY [None]
  - DIZZINESS [None]
  - VIRAL INFECTION [None]
  - DIARRHOEA [None]
  - FALL [None]
  - DEHYDRATION [None]
